FAERS Safety Report 11497238 (Version 2)
Quarter: 2016Q4

REPORT INFORMATION
  Report Type: Report from Study
  Country: US (occurrence: US)
  Receive Date: 20150911
  Receipt Date: 20161230
  Transmission Date: 20170206
  Serious: Yes (Other)
  Sender: FDA-Public Use
  Company Number: US-PFIZER INC-2015297648

PATIENT
  Age: 14 Year
  Sex: Male
  Weight: 57 kg

DRUGS (20)
  1. DEXAMETHASONE. [Concomitant]
     Active Substance: DEXAMETHASONE
     Dosage: 5 MG/M2, CYCLIC ON DAYS 1-5
     Route: 048
     Dates: start: 20140825
  2. ENOXAPARIN [Concomitant]
     Active Substance: ENOXAPARIN
  3. CYTARABINE. [Concomitant]
     Active Substance: CYTARABINE
     Indication: ANAPLASTIC LARGE CELL LYMPHOMA T- AND NULL-CELL TYPES
     Dosage: 15-24MG IT ON DAY 1
     Route: 037
  4. VP-16 [Concomitant]
     Active Substance: ETOPOSIDE
     Indication: ANAPLASTIC LARGE CELL LYMPHOMA T- AND NULL-CELL TYPES
     Dosage: 100 MG/M2, CYCLIC OVER 2 HOURS ON DAYS 4 AND 5
     Route: 042
  5. HYDROCORTISONE. [Concomitant]
     Active Substance: HYDROCORTISONE
     Indication: ANAPLASTIC LARGE CELL LYMPHOMA T- AND NULL-CELL TYPES
     Dosage: 7.5-12 MG, ON DAY 1 (AGE BASED DOSING)
     Route: 037
  6. IFOSFAMIDE. [Concomitant]
     Active Substance: IFOSFAMIDE
     Indication: ANAPLASTIC LARGE CELL LYMPHOMA T- AND NULL-CELL TYPES
     Dosage: 800 MG/M2, CYCLIC OVER 60 MIN ON DAYS 1-5
     Route: 042
     Dates: start: 20140825
  7. METHOTREXATE. [Concomitant]
     Active Substance: METHOTREXATE
     Indication: ANAPLASTIC LARGE CELL LYMPHOMA T- AND NULL-CELL TYPES
     Dosage: 7.5-12MG IT (INTRATHECAL) ON DAY 1
     Route: 037
  8. ACETAMINOPHEN. [Concomitant]
     Active Substance: ACETAMINOPHEN
  9. AMOXICILLIN. [Concomitant]
     Active Substance: AMOXICILLIN
  10. SENNOSIDES. [Concomitant]
     Active Substance: SENNOSIDES
  11. DOXORUBICIN HYDROCHLORIDE. [Concomitant]
     Active Substance: DOXORUBICIN HYDROCHLORIDE
     Indication: ANAPLASTIC LARGE CELL LYMPHOMA T- AND NULL-CELL TYPES
     Dosage: 25 MG/M2, CYCLIC OVER 1-15 MIN ON DAYS 4 AND 5
     Route: 042
  12. COTRIMOXAZOLE [Concomitant]
     Active Substance: SULFAMETHOXAZOLE\TRIMETHOPRIM
  13. LORAZEPAM. [Concomitant]
     Active Substance: LORAZEPAM
  14. PROMETHAZINE [Concomitant]
     Active Substance: PROMETHAZINE\PROMETHAZINE HYDROCHLORIDE
  15. CRIZOTINIB [Suspect]
     Active Substance: CRIZOTINIB
     Indication: ANAPLASTIC LARGE CELL LYMPHOMA T- AND NULL-CELL TYPES
     Dosage: 165 MG/M2, BID (ON DAYS 1-21)
     Route: 048
     Dates: start: 20140825
  16. CYTARABINE. [Concomitant]
     Active Substance: CYTARABINE
     Dosage: 150 MG/M2, CYCLIC VER 1-30 MINUTES EVERY 12 HOURS ON DAYS 4 AND 5 (TOTAL 4 DOSES)
     Route: 042
  17. METHOTREXATE. [Concomitant]
     Active Substance: METHOTREXATE
     Dosage: 3000 MG/M2, CYCLIC OVER 3 HOURS ON DAY 1
     Route: 042
     Dates: start: 20140825
  18. RANITIDINE. [Concomitant]
     Active Substance: RANITIDINE
  19. CYCLOPHOSPHAMIDE. [Concomitant]
     Active Substance: CYCLOPHOSPHAMIDE
     Indication: ANAPLASTIC LARGE CELL LYMPHOMA T- AND NULL-CELL TYPES
     Dosage: 200 MG/M2, CYCLIC OVER 15-30 MINUTES ON DAYS 1 AND 2
     Route: 042
  20. DEXAMETHASONE. [Concomitant]
     Active Substance: DEXAMETHASONE
     Indication: ANAPLASTIC LARGE CELL LYMPHOMA T- AND NULL-CELL TYPES
     Dosage: 5MG/M2 QD ON DAYS 1-2, AND 5MG/M2 BID ON DAYS 3-5
     Route: 048

REACTIONS (1)
  - Embolism [Unknown]

NARRATIVE: CASE EVENT DATE: 20141204
